FAERS Safety Report 10789278 (Version 1)
Quarter: 2015Q1

REPORT INFORMATION
  Report Type: Spontaneous
  Country: US (occurrence: US)
  Receive Date: 20150212
  Receipt Date: 20150212
  Transmission Date: 20150721
  Serious: No
  Sender: FDA-Public Use
  Company Number: US-GLAXOSMITHKLINE-A1059320A

PATIENT

DRUGS (1)
  1. ARIXTRA [Suspect]
     Active Substance: FONDAPARINUX SODIUM
     Indication: THROMBOSIS
     Route: 065
     Dates: start: 201303, end: 201305

REACTIONS (2)
  - Thrombosis [Unknown]
  - Drug administration error [Unknown]

NARRATIVE: CASE EVENT DATE: 201305
